FAERS Safety Report 20024988 (Version 7)
Quarter: 2022Q3

REPORT INFORMATION
  Report Type: Spontaneous
  Country: PT (occurrence: PT)
  Receive Date: 20211102
  Receipt Date: 20220914
  Transmission Date: 20221027
  Serious: Yes (Life-Threatening, Hospitalization, Other)
  Sender: FDA-Public Use
  Company Number: PT-MYLANLABS-2021M1077640

PATIENT
  Age: 79 Year
  Sex: Female

DRUGS (3)
  1. APIXABAN [Suspect]
     Active Substance: APIXABAN
     Indication: Cerebrovascular accident prophylaxis
     Dosage: UNK
     Route: 048
  2. APIXABAN [Suspect]
     Active Substance: APIXABAN
     Indication: Atrial fibrillation
  3. ASPIRIN [Suspect]
     Active Substance: ASPIRIN
     Indication: Cerebellar infarction
     Dosage: UNK
     Route: 065

REACTIONS (13)
  - Shock haemorrhagic [Recovered/Resolved]
  - Depressed level of consciousness [Recovering/Resolving]
  - Haemoglobin decreased [Recovering/Resolving]
  - Hypotension [Recovering/Resolving]
  - Renal haemorrhage [Recovered/Resolved]
  - Acid-base balance disorder mixed [Recovering/Resolving]
  - Acidosis [Recovering/Resolving]
  - Cerebellar infarction [Recovered/Resolved]
  - Kidney rupture [Recovered/Resolved]
  - Embolic cerebral infarction [Recovered/Resolved]
  - Hemiparesis [Unknown]
  - Abdominal pain [Unknown]
  - Therapy non-responder [Unknown]
